FAERS Safety Report 4702764-6 (Version None)
Quarter: 2005Q2

REPORT INFORMATION
  Report Type: 
  Country: None (occurrence: None)
  Receive Date: 20050628
  Receipt Date: 20050628
  Transmission Date: 20051028
  Serious: No
  Sender: FDA-Public Use
  Company Number: None

PATIENT
  Age: 72 Year
  Sex: Female

DRUGS (1)
  1. STANNOUS FLUIR RNS MINT 283ML - 0.63% [Suspect]
     Indication: GINGIVITIS
     Dosage: RINSE AS DIRECTED
     Route: 048
     Dates: start: 20050610

REACTIONS (3)
  - DYSGEUSIA [None]
  - NAUSEA [None]
  - ORAL DISCOMFORT [None]
